FAERS Safety Report 5754869-9 (Version None)
Quarter: 2008Q2

REPORT INFORMATION
  Report Type: 
  Country: None (occurrence: None)
  Receive Date: 20080527
  Receipt Date: 20080507
  Transmission Date: 20081010
  Serious: Yes (Disabling)
  Sender: FDA-Public Use
  Company Number: 2008AL003920

PATIENT
  Sex: Male

DRUGS (1)
  1. DIGOXIN [Suspect]

REACTIONS (3)
  - RENAL DISORDER [None]
  - RENAL TRANSPLANT [None]
  - TENDERNESS [None]
